FAERS Safety Report 8115789-8 (Version None)
Quarter: 2012Q1

REPORT INFORMATION
  Report Type: 
  Country: None (occurrence: None)
  Receive Date: 20120206
  Receipt Date: 20120123
  Transmission Date: 20120608
  Serious: Yes (Other)
  Sender: FDA-Public Use
  Company Number: KR-ROCHE-1037026

PATIENT
  Age: 57 Year
  Sex: Female

DRUGS (2)
  1. TAMIFLU [Suspect]
     Indication: INFLUENZA
     Dosage: 5 DAYS
  2. WARFARIN SODIUM [Interacting]
     Indication: CARDIAC VALVE DISEASE

REACTIONS (3)
  - DRUG INTERACTION [None]
  - INTERNATIONAL NORMALISED RATIO INCREASED [None]
  - HAEMOPTYSIS [None]
